FAERS Safety Report 8909694 (Version 2)
Quarter: 2012Q4

REPORT INFORMATION
  Report Type: 
  Country: JP (occurrence: JP)
  Receive Date: 20121115
  Receipt Date: 20121120
  Transmission Date: 20130627
  Serious: Yes (Other)
  Sender: FDA-Public Use
  Company Number: JP-PFIZER INC-2012285636

PATIENT
  Age: 72 Year
  Sex: Male

DRUGS (3)
  1. LYRICA [Suspect]
     Indication: SCIATICA
     Dosage: UNK
     Dates: start: 201210
  2. WARFARIN [Suspect]
     Indication: CARDIAC FAILURE
     Dosage: UNK
     Dates: end: 201211
  3. VOLTAREN [Concomitant]
     Indication: SCIATICA
     Dosage: UNK
     Dates: start: 201210

REACTIONS (3)
  - Haemorrhagic diathesis [Recovered/Resolved]
  - International normalised ratio increased [Recovered/Resolved]
  - Epistaxis [Unknown]
